FAERS Safety Report 26067151 (Version 2)
Quarter: 2025Q4

REPORT INFORMATION
  Report Type: Report from Study
  Country: US (occurrence: US)
  Receive Date: 20251119
  Receipt Date: 20251210
  Transmission Date: 20260118
  Serious: Yes (Other)
  Sender: ABBVIE
  Company Number: US-ABBVIE-6554233

PATIENT
  Sex: Female

DRUGS (1)
  1. SKYRIZI [Suspect]
     Active Substance: RISANKIZUMAB-RZAA
     Indication: Colitis ulcerative
     Route: 058

REACTIONS (5)
  - Gallbladder operation [Recovering/Resolving]
  - Device issue [Recovered/Resolved]
  - Oropharyngeal pain [Recovering/Resolving]
  - Speech disorder [Unknown]
  - Endotracheal intubation [Unknown]
